FAERS Safety Report 12089572 (Version 2)
Quarter: 2016Q1

REPORT INFORMATION
  Report Type: Spontaneous
  Country: US (occurrence: US)
  Receive Date: 20160218
  Receipt Date: 20160307
  Transmission Date: 20160526
  Serious: No
  Sender: FDA-Public Use
  Company Number: US-PFIZER INC-2016088135

PATIENT
  Age: 73 Year
  Sex: Female
  Weight: 81.65 kg

DRUGS (8)
  1. LYRICA [Suspect]
     Active Substance: PREGABALIN
     Indication: NERVE INJURY
     Dosage: 75MG CAPSULE BY MOUTH TWO A DAY AT BEDTIME
     Route: 048
     Dates: start: 2015
  2. PARACETAMOL [Concomitant]
     Active Substance: ACETAMINOPHEN
     Indication: ARTHRITIS
     Dosage: 650MG TABLET BY MOUTH 4 A DAY
     Route: 048
  3. NEXIUM [Concomitant]
     Active Substance: ESOMEPRAZOLE MAGNESIUM
     Indication: HIATUS HERNIA
     Dosage: 40 MG, DAILY
     Route: 048
  4. ASACOL [Concomitant]
     Active Substance: MESALAMINE
     Indication: GASTROINTESTINAL TRACT IRRITATION
     Dosage: 400MG TABLET BY MOUTH TWO A DAY
     Route: 048
     Dates: start: 2005
  5. HUMIRA [Concomitant]
     Active Substance: ADALIMUMAB
     Indication: ARTHRITIS
     Dosage: 40MG INJECTION EVERY 14 DAYS
     Dates: start: 201411
  6. MEDROL [Concomitant]
     Active Substance: METHYLPREDNISOLONE
     Indication: ARTHRITIS
     Dosage: 4MG TABLET BY MOUTH TAKE A HALF EVERY OTHER DAY
     Route: 048
  7. FOLIC ACID. [Concomitant]
     Active Substance: FOLIC ACID
     Indication: ARTHRITIS
     Dosage: 1MG TABLET BY MOUTH ONCE A DAY, EXCEPT THE DAY SHE TAKES METHOTREXATE
     Route: 048
  8. METHOTREXATE [Concomitant]
     Active Substance: METHOTREXATE
     Indication: ARTHRITIS
     Dosage: 2.5MG TABLETS BY MOUTH TAKE 6 A WEEK ALL AT ONCE
     Route: 048

REACTIONS (1)
  - Hypoacusis [Not Recovered/Not Resolved]
